FAERS Safety Report 14688299 (Version 1)
Quarter: 2018Q1

REPORT INFORMATION
  Report Type: Spontaneous
  Country: US (occurrence: US)
  Receive Date: 20180328
  Receipt Date: 20180328
  Transmission Date: 20180509
  Serious: No
  Sender: FDA-Public Use
  Company Number: US-TRIS PHARMA, INC-2018TRISPO00121

PATIENT

DRUGS (2)
  1. DYANAVEL XR [Suspect]
     Active Substance: AMPHETAMINE
     Indication: PRODUCT USED FOR UNKNOWN INDICATION
     Dosage: 2 ML, UNK
     Route: 065
  2. DYANAVEL XR [Suspect]
     Active Substance: AMPHETAMINE
     Dosage: 4 ML, UNK
     Route: 065

REACTIONS (1)
  - Violence-related symptom [Recovered/Resolved]
